FAERS Safety Report 6095242 (Version 6)
Quarter: 2013Q1

REPORT INFORMATION
  Report Type: Spontaneous
  Country: US (occurrence: US)
  Receive Date: 20060801
  Receipt Date: 20130308
  Transmission Date: 20140127
  Serious: Yes (Death, Hospitalization, Disabling, Other)
  Sender: FDA-Public Use
  Company Number: US-BAYER-200614818BWH

PATIENT
  Age: 79 Year
  Sex: Male
  Weight: 89.09 kg

DRUGS (11)
  1. NEXAVAR [Suspect]
     Indication: RENAL CELL CARCINOMA
     Dosage: 400 MG, BID
     Route: 048
     Dates: start: 20060428, end: 200606
  2. NEXAVAR [Suspect]
     Indication: RENAL CELL CARCINOMA
     Dosage: 200 MG, BID
     Route: 048
     Dates: start: 200606, end: 20060712
  3. HUMULIN 70/30 [Concomitant]
     Indication: DIABETES MELLITUS
     Route: 058
  4. GLUCOPHAGE [Concomitant]
     Indication: DIABETES MELLITUS
     Dosage: UNK
     Route: 048
  5. LUPRON [Concomitant]
     Route: 030
  6. TOPROL XL [Concomitant]
     Indication: HYPERTENSION
     Route: 048
     Dates: end: 200604
  7. TOPROL XL [Concomitant]
     Indication: HYPERTENSION
     Dosage: UNK UNK, QD
     Route: 048
     Dates: start: 200604
  8. TAMSULOSIN HYDROCHLORIDE [Concomitant]
     Route: 048
  9. RESTORIL [Concomitant]
  10. LIPITOR [Concomitant]
  11. LOTENSIN [Concomitant]
     Route: 058

REACTIONS (19)
  - Back pain [Fatal]
  - Diarrhoea [Recovered/Resolved]
  - Heart rate increased [Fatal]
  - Abdominal pain upper [Fatal]
  - Intestinal infarction [Fatal]
  - Haemoptysis [Recovered/Resolved]
  - Osteolysis [Unknown]
  - Pain [Unknown]
  - Abasia [Unknown]
  - Pathological fracture [Recovered/Resolved]
  - Chest pain [Unknown]
  - Mass [Unknown]
  - Decreased appetite [Unknown]
  - Weight decreased [Unknown]
  - Poor quality sleep [Unknown]
  - Anxiety [Unknown]
  - Constipation [Unknown]
  - Blood pressure increased [Not Recovered/Not Resolved]
  - Metastases to lung [Fatal]
